FAERS Safety Report 6025591-9 (Version None)
Quarter: 2008Q4

REPORT INFORMATION
  Report Type: 
  Country: None (occurrence: None)
  Receive Date: 20081231
  Receipt Date: 20081222
  Transmission Date: 20090506
  Serious: Yes (Life-Threatening, Other)
  Sender: FDA-Public Use
  Company Number: CA-AMGEN-QUU325277

PATIENT
  Sex: Male
  Weight: 95 kg

DRUGS (16)
  1. ARANESP [Suspect]
     Indication: DIALYSIS
     Route: 058
     Dates: start: 20071218, end: 20080901
  2. PLACEBO [Concomitant]
     Route: 048
     Dates: start: 20071029
  3. ASPIRIN [Concomitant]
     Route: 048
     Dates: start: 20080313
  4. CALCIUM [Concomitant]
     Route: 048
     Dates: start: 20071101
  5. CATAPRES [Concomitant]
     Route: 048
     Dates: start: 20071101
  6. TIAZAC [Concomitant]
     Route: 048
     Dates: start: 20071214
  7. ALTACE [Concomitant]
     Route: 048
     Dates: start: 20071102
  8. COLACE [Concomitant]
     Route: 048
     Dates: start: 20080602
  9. LASIX [Concomitant]
     Route: 048
     Dates: start: 20080918
  10. LANTHANUM CARBONATE [Concomitant]
     Route: 048
     Dates: start: 20080918
  11. GLUCONORM [Concomitant]
     Route: 048
     Dates: start: 20071214
  12. SENOKOT [Concomitant]
     Route: 048
     Dates: start: 20080806
  13. RENAGEL [Concomitant]
     Dates: start: 20080626, end: 20080820
  14. LOVAZA [Concomitant]
     Route: 048
     Dates: end: 20080714
  15. SIMVASTATIN [Concomitant]
  16. EZETIMIBE [Concomitant]

REACTIONS (1)
  - ANAEMIA [None]
